FAERS Safety Report 5090749-2 (Version None)
Quarter: 2006Q3

REPORT INFORMATION
  Report Type: 
  Country: None (occurrence: None)
  Receive Date: 20060823
  Receipt Date: 20060807
  Transmission Date: 20061208
  Serious: Yes (Hospitalization)
  Sender: FDA-Public Use
  Company Number: DSA_28517_2006

PATIENT
  Age: 27 Year
  Sex: Female

DRUGS (2)
  1. TAVOR [Suspect]
     Dosage: 14 MG ONCE PO
     Route: 048
     Dates: start: 20060723, end: 20060723
  2. EUNEPRAN [Suspect]
     Dosage: 300 MG ONCE PO
     Route: 048
     Dates: start: 20060723, end: 20060723

REACTIONS (5)
  - HYPOKALAEMIA [None]
  - MULTIPLE DRUG OVERDOSE INTENTIONAL [None]
  - SOMNOLENCE [None]
  - SUICIDE ATTEMPT [None]
  - TACHYCARDIA [None]
